FAERS Safety Report 13734984 (Version 1)
Quarter: 2017Q3

REPORT INFORMATION
  Report Type: Report from Study
  Country: JP (occurrence: JP)
  Receive Date: 20170710
  Receipt Date: 20170710
  Transmission Date: 20171127
  Serious: Yes (Other)
  Sender: FDA-Public Use
  Company Number: JP-ROCHE-1955048

PATIENT

DRUGS (9)
  1. FLUOROURACIL. [Suspect]
     Active Substance: FLUOROURACIL
     Route: 065
  2. OXALIPLATIN. [Suspect]
     Active Substance: OXALIPLATIN
     Indication: COLORECTAL CANCER METASTATIC
     Dosage: ON DAY 1, FOLLOWED BY 46 H OF CONTINUOUS INFUSION
     Route: 065
  3. CAPECITABINE. [Suspect]
     Active Substance: CAPECITABINE
     Indication: COLORECTAL CANCER METASTATIC
     Dosage: DOSE: 1600 MG/M2 FOR PATIENTS AGED }/=65 YEARS OR 2000 MG/M2 FOR PATIENTS AGED {65 YEARS) ON DAYS 1-
     Route: 065
  4. IRINOTECAN [Suspect]
     Active Substance: IRINOTECAN
     Indication: COLORECTAL CANCER METASTATIC
     Route: 065
  5. BEVACIZUMAB. [Suspect]
     Active Substance: BEVACIZUMAB
     Indication: COLORECTAL CANCER METASTATIC
     Route: 065
  6. BEVACIZUMAB. [Suspect]
     Active Substance: BEVACIZUMAB
     Dosage: DOSE: 7.5 MG/KG) ON DAY 1 AND Q21D.
     Route: 065
  7. FLUOROURACIL. [Suspect]
     Active Substance: FLUOROURACIL
     Indication: COLORECTAL CANCER METASTATIC
     Route: 065
  8. FLUOROURACIL. [Suspect]
     Active Substance: FLUOROURACIL
     Route: 065
  9. LEUCOVORIN. [Suspect]
     Active Substance: LEUCOVORIN
     Indication: COLORECTAL CANCER METASTATIC
     Route: 065

REACTIONS (16)
  - Neutropenia [Unknown]
  - Renal impairment [Unknown]
  - Fatigue [Unknown]
  - Palmar-plantar erythrodysaesthesia syndrome [Unknown]
  - Thrombocytopenia [Unknown]
  - Vomiting [Unknown]
  - Febrile neutropenia [Unknown]
  - Leukopenia [Unknown]
  - Anaemia [Unknown]
  - Diarrhoea [Unknown]
  - Stomatitis [Unknown]
  - Neuropathy peripheral [Unknown]
  - Hypertension [Unknown]
  - Hepatic function abnormal [Unknown]
  - Constipation [Unknown]
  - Nausea [Unknown]
